FAERS Safety Report 5729553-8 (Version None)
Quarter: 2008Q2

REPORT INFORMATION
  Report Type: 
  Country: None (occurrence: None)
  Receive Date: 20080501
  Receipt Date: 20080417
  Transmission Date: 20081010
  Serious: Yes (Other)
  Sender: FDA-Public Use
  Company Number: 2008-GWUS-0259

PATIENT
  Age: 53 Year
  Sex: Female
  Weight: 65.7716 kg

DRUGS (5)
  1. ALDARA [Suspect]
     Indication: PRECANCEROUS CELLS PRESENT
     Dosage: APPLICATION - QD - TOPICAL
     Route: 061
     Dates: start: 20070501, end: 20070101
  2. CANDESARTAN CILEXETIL (ATACAND) [Concomitant]
  3. ZOCOR [Concomitant]
  4. PREVACID [Concomitant]
  5. VALACYCLOVIR HYDROCHLORIDE (VALTREX) [Concomitant]

REACTIONS (6)
  - ANAEMIA [None]
  - COLON CANCER [None]
  - DIARRHOEA [None]
  - FATIGUE [None]
  - INFLUENZA LIKE ILLNESS [None]
  - NAUSEA [None]
